FAERS Safety Report 15246611 (Version 1)
Quarter: 2018Q3

REPORT INFORMATION
  Report Type: Spontaneous
  Country: US (occurrence: US)
  Receive Date: 20180806
  Receipt Date: 20180806
  Transmission Date: 20181010
  Serious: Yes (Hospitalization, Other)
  Sender: FDA-Public Use
  Company Number: US-SUNOVION-2018SUN003036

PATIENT
  Sex: Male

DRUGS (1)
  1. LATUDA [Suspect]
     Active Substance: LURASIDONE HYDROCHLORIDE
     Indication: BIPOLAR DISORDER
     Dosage: UNK
     Route: 048

REACTIONS (12)
  - Pruritus [Unknown]
  - Insomnia [Unknown]
  - Cardiac disorder [Unknown]
  - Blood glucose abnormal [Unknown]
  - Feeling cold [Unknown]
  - Tremor [Unknown]
  - Diabetes mellitus [Unknown]
  - Tardive dyskinesia [Unknown]
  - Bipolar disorder [Unknown]
  - Drug ineffective [Unknown]
  - Temperature intolerance [Unknown]
  - Feeling hot [Unknown]
